FAERS Safety Report 25990649 (Version 3)
Quarter: 2025Q4

REPORT INFORMATION
  Report Type: Spontaneous
  Country: BR (occurrence: BR)
  Receive Date: 20251103
  Receipt Date: 20251214
  Transmission Date: 20260118
  Serious: Yes (Other)
  Sender: TAKEDA
  Company Number: BR-TAKEDA-2025TUS095577

PATIENT
  Age: 58 Year
  Sex: Male

DRUGS (1)
  1. FEIBA NF [Suspect]
     Active Substance: ANTI-INHIBITOR COAGULANT COMPLEX
     Indication: Haemorrhage prophylaxis
     Dosage: 90 UI/KG, QOD

REACTIONS (4)
  - Cushing^s syndrome [Unknown]
  - Blood glucose increased [Unknown]
  - Psoriasis [Unknown]
  - Hypertension [Unknown]
